FAERS Safety Report 6736502-2 (Version None)
Quarter: 2010Q2

REPORT INFORMATION
  Report Type: 
  Country: None (occurrence: None)
  Receive Date: 20100519
  Receipt Date: 20100503
  Transmission Date: 20101027
  Serious: Yes (Other)
  Sender: FDA-Public Use
  Company Number: 2010RR-33448

PATIENT
  Sex: Female

DRUGS (2)
  1. AMOXICILLIN [Suspect]
     Indication: DRUG USE FOR UNKNOWN INDICATION
  2. MOMENDOL [Concomitant]

REACTIONS (2)
  - SWOLLEN TONGUE [None]
  - TONGUE DISORDER [None]
